FAERS Safety Report 15048395 (Version 1)
Quarter: 2018Q2

REPORT INFORMATION
  Report Type: Spontaneous
  Country: IT (occurrence: IT)
  Receive Date: 20180622
  Receipt Date: 20180622
  Transmission Date: 20180711
  Serious: Yes (Hospitalization)
  Sender: FDA-Public Use
  Company Number: IT-CONCORDIA PHARMACEUTICALS INC.-E2B_00012793

PATIENT
  Age: 86 Year
  Sex: Male

DRUGS (8)
  1. COUMADIN [Concomitant]
     Active Substance: WARFARIN SODIUM
  2. LANSOPRAZOLE. [Concomitant]
     Active Substance: LANSOPRAZOLE
  3. LEVOPRAID [Concomitant]
  4. LANOXIN [Suspect]
     Active Substance: DIGOXIN
     Indication: CARDIAC DISORDER
     Route: 048
     Dates: start: 20180101, end: 20180510
  5. CONGESCOR 1,25 MG, COMPRESSE FILM-RIVESTITE [Concomitant]
     Active Substance: BISOPROLOL FUMARATE
  6. SERTRALINE [Concomitant]
     Active Substance: SERTRALINE HYDROCHLORIDE
  7. ZYLORIC [Concomitant]
     Active Substance: ALLOPURINOL
  8. LASIX [Concomitant]
     Active Substance: FUROSEMIDE

REACTIONS (3)
  - Overdose [Unknown]
  - Vomiting [Unknown]
  - Sopor [Unknown]

NARRATIVE: CASE EVENT DATE: 20180510
